FAERS Safety Report 25206846 (Version 1)
Quarter: 2025Q2

REPORT INFORMATION
  Report Type: Spontaneous
  Country: US (occurrence: US)
  Receive Date: 20250417
  Receipt Date: 20250417
  Transmission Date: 20250717
  Serious: No
  Sender: SUNOVION
  Company Number: US-SMPA-2025SPA003603AA

PATIENT

DRUGS (1)
  1. ORGOVYX [Suspect]
     Active Substance: RELUGOLIX
     Indication: Prostate cancer
     Dosage: 120 MG, QD
     Route: 048

REACTIONS (6)
  - Pollakiuria [Unknown]
  - Urinary incontinence [Unknown]
  - Skin papilloma [Unknown]
  - Urticaria [Unknown]
  - Constipation [Unknown]
  - Diarrhoea [Unknown]
